FAERS Safety Report 6429421-2 (Version None)
Quarter: 2009Q4

REPORT INFORMATION
  Report Type: 
  Country: None (occurrence: None)
  Receive Date: 20091105
  Receipt Date: 20090717
  Transmission Date: 20100525
  Serious: No
  Sender: FDA-Public Use
  Company Number: US-ABBOTT-09P-163-0575239-00

PATIENT
  Sex: Male
  Weight: 66.284 kg

DRUGS (3)
  1. KALETRA [Suspect]
     Indication: HIV INFECTION
     Dates: start: 20050801
  2. TRUVADA [Suspect]
     Indication: HIV INFECTION
  3. ZOLOFT [Concomitant]
     Indication: DRUG USE FOR UNKNOWN INDICATION

REACTIONS (4)
  - ABNORMAL FAECES [None]
  - DIARRHOEA [None]
  - NAUSEA [None]
  - VOMITING [None]
